FAERS Safety Report 6306078-2 (Version None)
Quarter: 2009Q3

REPORT INFORMATION
  Report Type: 
  Country: None (occurrence: None)
  Receive Date: 20090812
  Receipt Date: 20090710
  Transmission Date: 20100115
  Serious: No
  Sender: FDA-Public Use
  Company Number: US-BAYER-200926516NA

PATIENT
  Sex: Female

DRUGS (1)
  1. MIRENA [Suspect]
     Indication: HAEMORRHAGE
     Dosage: CONTINUOUS
     Route: 015
     Dates: start: 20090701

REACTIONS (2)
  - HAEMORRHAGE [None]
  - MUSCLE SPASMS [None]
